FAERS Safety Report 15287323 (Version 4)
Quarter: 2025Q3

REPORT INFORMATION
  Report Type: Report from Study
  Country: EU (occurrence: EU)
  Receive Date: 20180817
  Receipt Date: 20250718
  Transmission Date: 20251020
  Serious: Yes (Other)
  Sender: AUROBINDO
  Company Number: EU-AUROBINDO-AUR-APL-2018-041849

PATIENT
  Age: 54 Year
  Sex: Male

DRUGS (15)
  1. EFAVIRENZ [Suspect]
     Active Substance: EFAVIRENZ
     Indication: Antiretroviral therapy
     Route: 065
     Dates: start: 2014
  2. EFAVIRENZ [Suspect]
     Active Substance: EFAVIRENZ
     Indication: HIV infection
  3. EFAVIRENZ [Suspect]
     Active Substance: EFAVIRENZ
     Indication: Hepatitis C
  4. EFAVIRENZ [Suspect]
     Active Substance: EFAVIRENZ
     Indication: Chronic hepatitis C
  5. LAMIVUDINE [Suspect]
     Active Substance: LAMIVUDINE
     Indication: Chronic hepatitis C
     Route: 065
  6. LAMIVUDINE [Suspect]
     Active Substance: LAMIVUDINE
     Indication: HIV infection
  7. LEDIPASVIR AND SOFOSBUVIR [Suspect]
     Active Substance: LEDIPASVIR\SOFOSBUVIR
     Indication: Product used for unknown indication
     Route: 065
  8. ABACAVIR [Suspect]
     Active Substance: ABACAVIR
     Indication: Hepatitis C
     Route: 065
     Dates: start: 2014
  9. ABACAVIR [Suspect]
     Active Substance: ABACAVIR
     Indication: HIV infection
  10. ABACAVIR [Suspect]
     Active Substance: ABACAVIR
     Indication: Chronic hepatitis C
  11. LORAZEPAM [Concomitant]
     Active Substance: LORAZEPAM
     Indication: Anxiety
     Route: 065
  12. LEDIPASVIR [Concomitant]
     Active Substance: LEDIPASVIR
     Indication: Hepatitis C
     Route: 065
  13. LEDIPASVIR [Concomitant]
     Active Substance: LEDIPASVIR
     Indication: HIV infection
  14. SOFOSBUVIR [Concomitant]
     Active Substance: SOFOSBUVIR
     Indication: Hepatitis C
     Route: 065
  15. SOFOSBUVIR [Concomitant]
     Active Substance: SOFOSBUVIR
     Indication: HIV infection

REACTIONS (2)
  - Neuropsychological symptoms [Recovered/Resolved]
  - Hepatitis B reactivation [Recovered/Resolved]
